FAERS Safety Report 15020108 (Version 3)
Quarter: 2018Q3

REPORT INFORMATION
  Report Type: Spontaneous
  Country: US (occurrence: US)
  Receive Date: 20180618
  Receipt Date: 20180723
  Transmission Date: 20181010
  Serious: No
  Sender: FDA-Public Use
  Company Number: US-TEVA-2018-US-904394

PATIENT
  Sex: Female

DRUGS (1)
  1. CLONAZEPAM. [Suspect]
     Active Substance: CLONAZEPAM
     Indication: DEPRESSION
     Dates: start: 1998, end: 20180511

REACTIONS (7)
  - Depressed mood [Unknown]
  - Feeling hot [Unknown]
  - Abdominal discomfort [Unknown]
  - Somnolence [Unknown]
  - Pyrexia [Unknown]
  - Drug ineffective [Unknown]
  - Panic attack [Unknown]

NARRATIVE: CASE EVENT DATE: 1998
